FAERS Safety Report 5487126-9 (Version None)
Quarter: 2007Q4

REPORT INFORMATION
  Report Type: 
  Country: None (occurrence: None)
  Receive Date: 20071016
  Receipt Date: 20071004
  Transmission Date: 20080405
  Serious: No
  Sender: FDA-Public Use
  Company Number: US-ELI_LILLY_AND_COMPANY-US200708002681

PATIENT
  Sex: Female

DRUGS (2)
  1. FORTEO [Suspect]
     Dates: start: 20061101
  2. FORTEO [Suspect]
     Dates: start: 20060101

REACTIONS (3)
  - FEAR [None]
  - MYALGIA [None]
  - OEDEMA PERIPHERAL [None]
